FAERS Safety Report 4568306-3 (Version None)
Quarter: 2005Q1

REPORT INFORMATION
  Report Type: 
  Country: None (occurrence: None)
  Receive Date: 20050202
  Receipt Date: 20050131
  Transmission Date: 20050727
  Serious: Yes (Life-Threatening)
  Sender: FDA-Public Use
  Company Number: FR-GLAXOSMITHKLINE-B0369341A

PATIENT
  Age: 34 Year
  Sex: Male

DRUGS (1)
  1. CLAMOXYL [Suspect]
     Indication: HEADACHE
     Dosage: 1TAB SINGLE DOSE
     Route: 048
     Dates: start: 20020901, end: 20020901

REACTIONS (10)
  - ANAPHYLACTIC REACTION [None]
  - ANGIONEUROTIC OEDEMA [None]
  - DRUG HYPERSENSITIVITY [None]
  - DYSPHAGIA [None]
  - DYSPHONIA [None]
  - DYSPNOEA [None]
  - GENERALISED ERYTHEMA [None]
  - LOSS OF CONSCIOUSNESS [None]
  - MEDICATION ERROR [None]
  - PRURITUS [None]
